FAERS Safety Report 6048423-1 (Version None)
Quarter: 2009Q1

REPORT INFORMATION
  Report Type: 
  Country: None (occurrence: None)
  Receive Date: 20090123
  Receipt Date: 20090116
  Transmission Date: 20090719
  Serious: Yes (Hospitalization)
  Sender: FDA-Public Use
  Company Number: A0764572A

PATIENT
  Age: 59 Year
  Sex: Male
  Weight: 63.6 kg

DRUGS (1)
  1. AVANDIA [Suspect]
     Route: 048

REACTIONS (2)
  - ANKLE FRACTURE [None]
  - MYOCARDIAL INFARCTION [None]
